FAERS Safety Report 17674674 (Version 2)
Quarter: 2020Q2

REPORT INFORMATION
  Report Type: Spontaneous
  Country: CH (occurrence: CH)
  Receive Date: 20200416
  Receipt Date: 20200421
  Transmission Date: 20200714
  Serious: Yes (Other)
  Sender: FDA-Public Use
  Company Number: NVSC2020CH098444

PATIENT
  Age: 74 Year
  Sex: Male

DRUGS (5)
  1. VALSARTAN. [Suspect]
     Active Substance: VALSARTAN
     Dosage: HALF TABLET OF 160 MG
     Route: 065
  2. METFIN 500 [Suspect]
     Active Substance: METFORMIN HYDROCHLORIDE
     Indication: PRODUCT USED FOR UNKNOWN INDICATION
     Dosage: HALF TABLET OF 500 MG
     Route: 065
  3. ASPIRIN CARDIO [Concomitant]
     Active Substance: ASPIRIN
     Indication: PRODUCT USED FOR UNKNOWN INDICATION
     Dosage: 100 MG, QOD
     Route: 065
  4. CO-VALSARTAN SANDOZ 80/12.5 [Suspect]
     Active Substance: HYDROCHLOROTHIAZIDE\VALSARTAN
     Indication: PRODUCT USED FOR UNKNOWN INDICATION
     Dosage: UNK UKN, 80/12.5
     Route: 065
  5. VALSARTAN. [Suspect]
     Active Substance: VALSARTAN
     Indication: PRODUCT USED FOR UNKNOWN INDICATION
     Dosage: 160 MG
     Route: 065

REACTIONS (10)
  - Fall [Unknown]
  - Hyperhidrosis [Unknown]
  - Dizziness [Unknown]
  - Altered state of consciousness [Unknown]
  - Haematochezia [Unknown]
  - Urinary incontinence [Unknown]
  - Malaise [Unknown]
  - Fatigue [Unknown]
  - Dyspnoea [Unknown]
  - Diarrhoea [Unknown]

NARRATIVE: CASE EVENT DATE: 20200220
